FAERS Safety Report 9489697 (Version 2)
Quarter: 2013Q3

REPORT INFORMATION
  Report Type: Report from Study
  Country: CA (occurrence: CA)
  Receive Date: 20130829
  Receipt Date: 20130829
  Transmission Date: 20140515
  Serious: Yes (Hospitalization, Other)
  Sender: FDA-Public Use
  Company Number: CA-ROCHE-1176368

PATIENT
  Age: 80 Year
  Sex: Female
  Weight: 63.5 kg

DRUGS (14)
  1. RITUXAN [Suspect]
     Indication: RHEUMATOID ARTHRITIS
     Route: 042
     Dates: start: 20120608
  2. RITUXAN [Suspect]
     Route: 065
     Dates: start: 20130222
  3. RITUXAN [Suspect]
     Route: 042
     Dates: start: 20130807
  4. WARFARIN [Concomitant]
  5. COZAAR [Concomitant]
  6. RABEPRAZOLE [Concomitant]
  7. ACTONEL [Concomitant]
  8. TYLENOL [Concomitant]
     Route: 065
  9. AZARGA [Concomitant]
     Dosage: DOSE: 1%/0.5%
     Route: 065
  10. MURO 128 [Concomitant]
  11. DIPHENHYDRAMINE HCL [Concomitant]
     Indication: PREMEDICATION
     Route: 048
     Dates: start: 20120608
  12. ACETAMINOPHEN [Concomitant]
     Indication: PREMEDICATION
     Route: 048
     Dates: start: 20120608
  13. PREDNISOLONE [Concomitant]
     Route: 065
  14. METHYLPREDNISOLONE [Concomitant]
     Indication: PREMEDICATION
     Route: 042
     Dates: start: 20120608

REACTIONS (15)
  - Blood pressure systolic increased [Recovering/Resolving]
  - Urinary tract infection [Recovered/Resolved]
  - Arthralgia [Not Recovered/Not Resolved]
  - Haemorrhage [Recovering/Resolving]
  - Fatigue [Recovered/Resolved]
  - Pain [Unknown]
  - Blood pressure fluctuation [Not Recovered/Not Resolved]
  - Fall [Unknown]
  - Dizziness [Recovered/Resolved]
  - Loss of consciousness [Recovering/Resolving]
  - Eye contusion [Recovering/Resolving]
  - Contusion [Recovered/Resolved with Sequelae]
  - Epistaxis [Recovering/Resolving]
  - Musculoskeletal pain [Recovering/Resolving]
  - Fracture [Recovering/Resolving]
